FAERS Safety Report 9549479 (Version 1)
Quarter: 2013Q3

REPORT INFORMATION
  Report Type: Spontaneous
  Country: US (occurrence: None)
  Receive Date: 20130719
  Receipt Date: 20130719
  Transmission Date: 20140515
  Serious: Yes (Hospitalization)
  Sender: FDA-Public Use
  Company Number: 2012BAX025393

PATIENT
  Age: 60 Year
  Sex: Female
  Weight: 67.1 kg

DRUGS (5)
  1. CYTOXAN [Suspect]
     Indication: BREAST CANCER
     Route: 042
     Dates: start: 20100401
  2. BEVACIZUMAB [Suspect]
     Indication: BREAST CANCER
     Route: 042
     Dates: start: 20100401
  3. PEGFILGRASTIM (PEGFILGRASTIM) [Suspect]
     Indication: PRODUCT USED FOR UNKNOWN INDICATION
     Route: 042
  4. ADRIAMYCIN [Suspect]
     Indication: PRODUCT USED FOR UNKNOWN INDICATION
     Route: 042
     Dates: start: 20100401
  5. PACLITAXEL (PACLITAXEL) [Concomitant]

REACTIONS (1)
  - Febrile neutropenia [None]
